FAERS Safety Report 20487616 (Version 1)
Quarter: 2022Q1

REPORT INFORMATION
  Report Type: Spontaneous
  Country: US (occurrence: US)
  Receive Date: 20220218
  Receipt Date: 20220218
  Transmission Date: 20220423
  Serious: No
  Sender: FDA-Public Use
  Company Number: US-SA-SAC20220210001154

PATIENT
  Sex: Female

DRUGS (2)
  1. DUPIXENT [Suspect]
     Active Substance: DUPILUMAB
     Indication: Dermatitis atopic
     Dosage: 300 MG, QOW
     Route: 058
     Dates: start: 20210127
  2. VITAMIN E [Concomitant]
     Active Substance: .ALPHA.-TOCOPHEROL

REACTIONS (2)
  - Ocular hyperaemia [Not Recovered/Not Resolved]
  - Eye irritation [Not Recovered/Not Resolved]
